FAERS Safety Report 10019993 (Version 1)
Quarter: 2014Q1

REPORT INFORMATION
  Report Type: Spontaneous
  Country: US (occurrence: US)
  Receive Date: 20140318
  Receipt Date: 20140318
  Transmission Date: 20141002
  Serious: Yes (Other)
  Sender: FDA-Public Use
  Company Number: US-TAKEDA-2014TUS001839

PATIENT
  Sex: 0

DRUGS (1)
  1. BRINTELLIX [Suspect]
     Indication: MAJOR DEPRESSION
     Dosage: UNK
     Route: 048

REACTIONS (2)
  - Suicidal ideation [Unknown]
  - Depression [Unknown]
